FAERS Safety Report 16215277 (Version 1)
Quarter: 2019Q2

REPORT INFORMATION
  Report Type: Spontaneous
  Country: US (occurrence: US)
  Receive Date: 20190419
  Receipt Date: 20190419
  Transmission Date: 20190711
  Serious: No
  Sender: FDA-Public Use
  Company Number: US-ASTRAZENECA-2019SE47660

PATIENT
  Age: 71 Year
  Sex: Male

DRUGS (1)
  1. BRILINTA [Suspect]
     Active Substance: TICAGRELOR
     Indication: ACUTE CORONARY SYNDROME
     Route: 048
     Dates: start: 20190318, end: 20190319

REACTIONS (7)
  - Vomiting [Unknown]
  - Hyperhidrosis [Unknown]
  - Tachycardia [Unknown]
  - Drug hypersensitivity [Unknown]
  - Tremor [Unknown]
  - Pyrexia [Unknown]
  - Chills [Unknown]

NARRATIVE: CASE EVENT DATE: 20190319
